FAERS Safety Report 9937142 (Version 1)
Quarter: 2014Q1

REPORT INFORMATION
  Report Type: Spontaneous
  Country: FR (occurrence: FR)
  Receive Date: 20140301
  Receipt Date: 20140301
  Transmission Date: 20141002
  Serious: Yes (Death, Hospitalization)
  Sender: FDA-Public Use
  Company Number: PHHY2014FR021496

PATIENT
  Age: 68 Year
  Sex: Male

DRUGS (3)
  1. OXALIPLATIN [Suspect]
     Indication: PSEUDOMYXOMA PERITONEI
     Dosage: 460 MG/M2, UNK
  2. LEUCOVORIN [Concomitant]
     Route: 042
  3. 5-FU [Concomitant]
     Route: 042

REACTIONS (16)
  - Death [Fatal]
  - Histiocytosis haematophagic [Unknown]
  - Haemodynamic instability [Unknown]
  - Haemoptysis [Unknown]
  - Pyrexia [Unknown]
  - Hepatomegaly [Unknown]
  - Splenomegaly [Unknown]
  - Jaundice [Unknown]
  - Hepatic haematoma [Unknown]
  - Effusion [Unknown]
  - Septic shock [Unknown]
  - Intra-abdominal haematoma [Unknown]
  - Multi-organ failure [Unknown]
  - Thrombocytopenia [Unknown]
  - Renal failure [Unknown]
  - Anaemia [Unknown]
